FAERS Safety Report 6596434-X (Version None)
Quarter: 2010Q1

REPORT INFORMATION
  Report Type: 
  Country: None (occurrence: None)
  Receive Date: 20100222
  Receipt Date: 20100222
  Transmission Date: 20100710
  Serious: No
  Sender: FDA-Public Use
  Company Number: None

PATIENT
  Age: 20 Year
  Sex: Male
  Weight: 136.0791 kg

DRUGS (7)
  1. SEROQUEL [Suspect]
     Indication: BIPOLAR DISORDER
     Dosage: 25MG
     Dates: start: 19981225, end: 19990310
  2. SEROQUEL [Suspect]
     Indication: SCHIZOAFFECTIVE DISORDER
     Dosage: 25MG
     Dates: start: 19981225, end: 19990310
  3. ZYPREXA [Suspect]
     Indication: BIPOLAR DISORDER
     Dosage: 15MG
     Dates: start: 20001212, end: 20010101
  4. ZYPREXA [Suspect]
     Indication: SCHIZOAFFECTIVE DISORDER
     Dosage: 15MG
     Dates: start: 20001212, end: 20010101
  5. ZOLOFT [Concomitant]
  6. NEURONTIN [Concomitant]
  7. LOXITANE [Concomitant]

REACTIONS (11)
  - DIZZINESS [None]
  - DRY MOUTH [None]
  - HYPERPHAGIA [None]
  - HYPERTENSION [None]
  - MUSCLE TWITCHING [None]
  - NAUSEA [None]
  - NIGHTMARE [None]
  - SEDATION [None]
  - SUICIDAL IDEATION [None]
  - TYPE 2 DIABETES MELLITUS [None]
  - URINE OUTPUT INCREASED [None]
